FAERS Safety Report 15239771 (Version 1)
Quarter: 2018Q3

REPORT INFORMATION
  Report Type: Spontaneous
  Country: US (occurrence: US)
  Receive Date: 20180710
  Receipt Date: 20180710
  Transmission Date: 20181010
  Serious: Yes (Death)
  Sender: FDA-Public Use
  Company Number: None

PATIENT
  Sex: Male

DRUGS (3)
  1. ACYCLOVIR 400MG [Concomitant]
  2. MEKINIST [Suspect]
     Active Substance: TRAMETINIB DIMETHYL SULFOXIDE
     Indication: PLASMA CELL MYELOMA
     Route: 048
     Dates: start: 20180614
  3. TAFINLAR [Suspect]
     Active Substance: DABRAFENIB MESYLATE
     Indication: PLASMA CELL MYELOMA
     Route: 048
     Dates: start: 20180626

REACTIONS (1)
  - Death [None]
